FAERS Safety Report 10680914 (Version 6)
Quarter: 2015Q3

REPORT INFORMATION
  Report Type: Spontaneous
  Country: US (occurrence: US)
  Receive Date: 20141229
  Receipt Date: 20150925
  Transmission Date: 20151125
  Serious: Yes (Other)
  Sender: FDA-Public Use
  Company Number: US-BAYER-2014-190271

PATIENT
  Age: 26 Year
  Sex: Female
  Weight: 58.96 kg

DRUGS (3)
  1. MIRENA [Suspect]
     Active Substance: LEVONORGESTREL
     Indication: CONTRACEPTION
     Dosage: 20 MCG/24HR, CONT
     Route: 015
     Dates: start: 20100317, end: 20130227
  2. MACRODANTIN [Concomitant]
     Active Substance: NITROFURANTOIN
  3. PYRIDIUM [Concomitant]
     Active Substance: PHENAZOPYRIDINE

REACTIONS (25)
  - Uterine perforation [None]
  - Device issue [None]
  - Abdominal tenderness [None]
  - Abdominal distension [None]
  - Genital haemorrhage [None]
  - Device use error [None]
  - Breast tenderness [None]
  - Ovarian cyst [None]
  - Emotional distress [None]
  - Dysstasia [None]
  - Nausea [None]
  - Alopecia [None]
  - Medical device discomfort [None]
  - Anxiety [None]
  - Headache [None]
  - Infertility female [None]
  - Injury [None]
  - Device breakage [None]
  - Pelvic pain [None]
  - Menstruation irregular [None]
  - Back pain [None]
  - Medical device pain [None]
  - Scar [None]
  - Complication of device removal [None]
  - Device difficult to use [None]

NARRATIVE: CASE EVENT DATE: 2011
